FAERS Safety Report 7006639-1 (Version None)
Quarter: 2010Q3

REPORT INFORMATION
  Report Type: 
  Country: None (occurrence: None)
  Receive Date: 20100921
  Receipt Date: 20100921
  Transmission Date: 20110219
  Serious: Yes (Other)
  Sender: FDA-Public Use
  Company Number: None

PATIENT
  Age: 48 Year
  Sex: Male
  Weight: 80.7403 kg

DRUGS (1)
  1. TYLENOL PM [Suspect]
     Indication: NASOPHARYNGITIS
     Dosage: 500 MG ONCE PO ONCE
     Route: 048
     Dates: start: 20100912

REACTIONS (3)
  - AKATHISIA [None]
  - DIPLOPIA [None]
  - DIZZINESS [None]
